FAERS Safety Report 12141913 (Version 2)
Quarter: 2016Q1

REPORT INFORMATION
  Report Type: Spontaneous
  Country: US (occurrence: US)
  Receive Date: 20160303
  Receipt Date: 20160324
  Transmission Date: 20160526
  Serious: No
  Sender: FDA-Public Use
  Company Number: US-TAKEDA-2016TUS003349

PATIENT
  Age: 38 Year
  Sex: Female
  Weight: 80.27 kg

DRUGS (3)
  1. CONTRAVE [Suspect]
     Active Substance: BUPROPION HYDROCHLORIDE\NALTREXONE HYDROCHLORIDE
     Dosage: 8MG/90MG, QID
     Route: 048
     Dates: end: 20160227
  2. CELEBREX [Concomitant]
     Active Substance: CELECOXIB
     Indication: ARTHROPATHY
     Dosage: UNK
     Route: 048
  3. CONTRAVE [Suspect]
     Active Substance: BUPROPION HYDROCHLORIDE\NALTREXONE HYDROCHLORIDE
     Indication: OBESITY
     Dosage: 8MG/90MG
     Route: 048
     Dates: start: 20160201

REACTIONS (1)
  - Urticaria [Recovered/Resolved]

NARRATIVE: CASE EVENT DATE: 20160201
